FAERS Safety Report 15678125 (Version 1)
Quarter: 2018Q4

REPORT INFORMATION
  Report Type: Spontaneous
  Country: US (occurrence: US)
  Receive Date: 20181201
  Receipt Date: 20181201
  Transmission Date: 20190205
  Serious: Yes (Hospitalization, Other)
  Sender: FDA-Public Use
  Company Number: US-AUROBINDO-AUR-APL-2018-057301

PATIENT
  Age: 22 Year
  Sex: Female

DRUGS (1)
  1. DIPHENHYDRAMINE HYDROCHLORIDE TABLETS 25 MG [Suspect]
     Active Substance: DIPHENHYDRAMINE HYDROCHLORIDE
     Indication: PRODUCT USED FOR UNKNOWN INDICATION
     Dosage: UNK
     Route: 065

REACTIONS (13)
  - Delirium [Unknown]
  - Nausea [Unknown]
  - Vomiting [Unknown]
  - Confusional state [Unknown]
  - Paraesthesia [Unknown]
  - Coma [Unknown]
  - Suicide attempt [Unknown]
  - Ventricular arrhythmia [Unknown]
  - Electrocardiogram QRS complex prolonged [Unknown]
  - Seizure [Unknown]
  - Tachycardia [Unknown]
  - Overdose [Unknown]
  - Toxicity to various agents [Unknown]
